FAERS Safety Report 8879874 (Version 2)
Quarter: 2012Q4

REPORT INFORMATION
  Report Type: Report from Study
  Country: US (occurrence: US)
  Receive Date: 20121101
  Receipt Date: 20121217
  Transmission Date: 20130627
  Serious: Yes (Other)
  Sender: FDA-Public Use
  Company Number: US-JNJFOC-20121010582

PATIENT
  Sex: Female
  Weight: 57.61 kg

DRUGS (16)
  1. REMICADE [Suspect]
     Indication: RHEUMATOID ARTHRITIS
     Route: 042
     Dates: start: 2010
  2. REMICADE [Suspect]
     Indication: PSORIATIC ARTHROPATHY
     Route: 042
     Dates: start: 2010
  3. OXYCONTIN [Suspect]
     Indication: PRODUCT USED FOR UNKNOWN INDICATION
     Route: 065
     Dates: end: 2012
  4. CYMBALTA [Suspect]
     Indication: PRODUCT USED FOR UNKNOWN INDICATION
     Route: 065
     Dates: end: 2012
  5. LYRICA [Suspect]
     Indication: PRODUCT USED FOR UNKNOWN INDICATION
     Route: 065
     Dates: end: 2012
  6. HYDROCODONE [Suspect]
     Indication: PRODUCT USED FOR UNKNOWN INDICATION
     Route: 065
     Dates: end: 2012
  7. PRILOSEC [Concomitant]
     Indication: DYSPEPSIA
     Route: 048
  8. JANUMET [Concomitant]
     Indication: DIABETES MELLITUS
     Route: 048
     Dates: start: 2009
  9. VITAMIN B12 [Concomitant]
     Indication: VITAMIN B12 DEFICIENCY
     Route: 050
     Dates: start: 2008
  10. LISINOPRIL [Concomitant]
     Indication: HYPERTENSION
     Route: 048
     Dates: start: 2009
  11. PAXIL [Concomitant]
     Indication: RELAXATION THERAPY
     Route: 048
     Dates: start: 2006
  12. CRESTOR [Concomitant]
     Indication: BLOOD CHOLESTEROL
     Route: 048
     Dates: start: 2008
  13. METHOTREXATE [Concomitant]
     Indication: ARTHRITIS
     Route: 048
  14. NIACIN [Concomitant]
     Route: 048
     Dates: start: 2006
  15. FISH OIL [Concomitant]
     Route: 048
  16. FOLIC ACID [Concomitant]
     Route: 065

REACTIONS (6)
  - Joint dislocation [Not Recovered/Not Resolved]
  - Fall [Recovered/Resolved]
  - Migraine [Unknown]
  - Malaise [Recovered/Resolved]
  - Rheumatoid arthritis [Not Recovered/Not Resolved]
  - Headache [Unknown]
